FAERS Safety Report 4392489-1 (Version None)
Quarter: 2004Q3

REPORT INFORMATION
  Report Type: 
  Country: None (occurrence: None)
  Receive Date: 20040701
  Receipt Date: 20040630
  Transmission Date: 20050211
  Serious: Yes (Death, Hospitalization)
  Sender: FDA-Public Use
  Company Number: ERD2004A00012

PATIENT
  Age: 77 Year
  Sex: Male

DRUGS (3)
  1. LEUPROLIDE ACETATE [Suspect]
     Indication: PROSTATE CANCER
     Dosage: SEE IMAGE; SINGLE DOSE
     Route: 058
     Dates: start: 20031023, end: 20031023
  2. LEUPROLIDE ACETATE [Suspect]
     Indication: PROSTATE CANCER
     Dosage: SEE IMAGE; SINGLE DOSE
     Route: 058
     Dates: start: 20040123, end: 20040123
  3. LEUPROLIDE ACETATE [Suspect]
     Indication: PROSTATE CANCER
     Dosage: SEE IMAGE; SINGLE DOSE
     Route: 058
     Dates: start: 20030724, end: 20040724

REACTIONS (17)
  - ATRIAL FIBRILLATION [None]
  - ATRIOVENTRICULAR BLOCK FIRST DEGREE [None]
  - BLOOD PRESSURE INCREASED [None]
  - BRONCHOPNEUMONIA [None]
  - CHOLELITHIASIS [None]
  - CIRCULATORY COLLAPSE [None]
  - COR PULMONALE [None]
  - CYANOSIS [None]
  - DRY SKIN [None]
  - DYSPNOEA [None]
  - GENERAL PHYSICAL HEALTH DETERIORATION [None]
  - HYPOTENSION [None]
  - OEDEMA PERIPHERAL [None]
  - RESPIRATORY FAILURE [None]
  - RIGHT VENTRICULAR FAILURE [None]
  - TONGUE COATED [None]
  - VARICOSE VEIN [None]
